FAERS Safety Report 25343148 (Version 5)
Quarter: 2025Q2

REPORT INFORMATION
  Report Type: Spontaneous
  Country: FR (occurrence: FR)
  Receive Date: 20250521
  Receipt Date: 20250630
  Transmission Date: 20250717
  Serious: Yes (Hospitalization, Other)
  Sender: BIOVITRUM
  Company Number: FR-BIOVITRUM-2025-FR-007133

PATIENT
  Age: 42 Year
  Sex: Female
  Weight: 43 kg

DRUGS (3)
  1. GAMIFANT [Suspect]
     Active Substance: EMAPALUMAB-LZSG
     Indication: Haemophagocytic lymphohistiocytosis
  2. GAMIFANT [Suspect]
     Active Substance: EMAPALUMAB-LZSG
  3. GAMIFANT [Suspect]
     Active Substance: EMAPALUMAB-LZSG

REACTIONS (3)
  - Haemophagocytic lymphohistiocytosis [Recovering/Resolving]
  - Condition aggravated [Recovering/Resolving]
  - Off label use [Not Recovered/Not Resolved]
